FAERS Safety Report 7773554-5 (Version None)
Quarter: 2011Q3

REPORT INFORMATION
  Report Type: 
  Country: None (occurrence: None)
  Receive Date: 20110922
  Receipt Date: 20110909
  Transmission Date: 20111222
  Serious: Yes (Other)
  Sender: FDA-Public Use
  Company Number: JP-BRISTOL-MYERS SQUIBB COMPANY-15998982

PATIENT
  Age: 67 Year
  Sex: Male

DRUGS (6)
  1. ACTOS [Concomitant]
     Indication: DIABETES MELLITUS
  2. METFORMIN HCL [Suspect]
     Indication: DIABETES MELLITUS
     Route: 048
     Dates: start: 20110608, end: 20110711
  3. AMLODIPINE [Concomitant]
  4. METFORMIN HCL [Concomitant]
     Indication: DIABETES MELLITUS
  5. LOSARTAN POTASSIUM [Concomitant]
  6. LOXONIN [Suspect]
     Route: 048

REACTIONS (1)
  - RENAL DISORDER [None]
